FAERS Safety Report 5006148-5 (Version None)
Quarter: 2006Q1

REPORT INFORMATION
  Report Type: 
  Country: None (occurrence: None)
  Receive Date: 20060328
  Receipt Date: 20060125
  Transmission Date: 20060701
  Serious: Yes (Hospitalization)
  Sender: FDA-Public Use
  Company Number: 06P-163-0323249-00

PATIENT
  Age: 72 Year
  Sex: Female
  Weight: 54.4316 kg

DRUGS (6)
  1. HUMIRA [Suspect]
     Indication: RHEUMATOID ARTHRITIS
     Dosage: 40 MG, 1 IN 2 WK, SUBCUTANEOUS
     Route: 058
     Dates: start: 20050601
  2. METHOTREXATE [Concomitant]
  3. NABUMETONE [Concomitant]
  4. LEVOTHYROXINE SODIUM [Concomitant]
  5. ALENDRONATE SODIUM [Concomitant]
  6. MULTIVITAMIN [Concomitant]

REACTIONS (2)
  - PAIN IN EXTREMITY [None]
  - RASH MACULAR [None]
